FAERS Safety Report 8531122-1 (Version None)
Quarter: 2012Q3

REPORT INFORMATION
  Report Type: 
  Country: None (occurrence: None)
  Receive Date: 20120711
  Receipt Date: 20120625
  Transmission Date: 20120928
  Serious: Yes (Other)
  Sender: FDA-Public Use
  Company Number: 2012AP001972

PATIENT
  Sex: Female

DRUGS (3)
  1. BUPRENORPHINE [Concomitant]
  2. ALENDRONATE SODIUM [Suspect]
     Indication: OSTEONECROSIS
     Dosage: 70 MG
     Route: 048
     Dates: start: 20120330, end: 20120416
  3. OMEPRAZOLE [Concomitant]

REACTIONS (3)
  - DENTAL DISCOMFORT [None]
  - EPIGASTRIC DISCOMFORT [None]
  - PAIN IN JAW [None]
